FAERS Safety Report 6068837-3 (Version None)
Quarter: 2009Q1

REPORT INFORMATION
  Report Type: 
  Country: None (occurrence: None)
  Receive Date: 20090206
  Receipt Date: 20090127
  Transmission Date: 20090719
  Serious: Yes (Hospitalization, Congenital Anomaly)
  Sender: FDA-Public Use
  Company Number: FR-ABBOTT-09P-056-0500050-00

PATIENT
  Sex: Female
  Weight: 2.3 kg

DRUGS (2)
  1. DEPAKENE [Suspect]
     Indication: DRUG EXPOSURE DURING PREGNANCY
     Route: 064
  2. SUBUTEX [Suspect]
     Indication: DRUG EXPOSURE DURING PREGNANCY
     Route: 064

REACTIONS (9)
  - DEVELOPMENTAL DELAY [None]
  - DRUG EXPOSURE DURING PREGNANCY [None]
  - DRUG WITHDRAWAL SYNDROME NEONATAL [None]
  - EAR MALFORMATION [None]
  - HYPOGLYCAEMIA NEONATAL [None]
  - HYPOTONIA NEONATAL [None]
  - LIMB MALFORMATION [None]
  - PHALANGEAL HYPOPLASIA [None]
  - PIERRE ROBIN SYNDROME [None]
